FAERS Safety Report 8645502 (Version 3)
Quarter: 2012Q4

REPORT INFORMATION
  Report Type: Report from Study
  Country: US (occurrence: US)
  Receive Date: 20120702
  Receipt Date: 20121011
  Transmission Date: 20130627
  Serious: Yes (Other)
  Sender: FDA-Public Use
  Company Number: US-ROCHE-1081092

PATIENT
  Age: 69 Year
  Sex: Male
  Weight: 83.99 kg

DRUGS (4)
  1. AVASTIN [Suspect]
     Indication: COLORECTAL CANCER
     Route: 042
     Dates: start: 20120130, end: 20120718
  2. VECTIBIX [Concomitant]
  3. TECTA [Concomitant]
  4. ZOFRAN [Concomitant]

REACTIONS (3)
  - Brain neoplasm [Unknown]
  - Neoplasm progression [Not Recovered/Not Resolved]
  - Rash [Not Recovered/Not Resolved]
